FAERS Safety Report 5687799-1 (Version None)
Quarter: 2008Q1

REPORT INFORMATION
  Report Type: 
  Country: None (occurrence: None)
  Receive Date: 20080328
  Receipt Date: 20080319
  Transmission Date: 20080703
  Serious: Yes (Hospitalization)
  Sender: FDA-Public Use
  Company Number: US-BAYER-200814152NA

PATIENT
  Age: 36 Year
  Sex: Female

DRUGS (2)
  1. BETASERON [Suspect]
     Indication: RELAPSING-REMITTING MULTIPLE SCLEROSIS
     Dosage: TOTAL DAILY DOSE: 8 MIU
     Route: 058
     Dates: start: 20070531, end: 20080119
  2. BETASERON [Suspect]
     Route: 058

REACTIONS (3)
  - GRAND MAL CONVULSION [None]
  - MIGRAINE [None]
  - PROGRESSIVE MULTIPLE SCLEROSIS [None]
